FAERS Safety Report 6339454-2 (Version None)
Quarter: 2009Q3

REPORT INFORMATION
  Report Type: 
  Country: None (occurrence: None)
  Receive Date: 20090903
  Receipt Date: 20090826
  Transmission Date: 20100115
  Serious: Yes (Hospitalization, Other)
  Sender: FDA-Public Use
  Company Number: BR-ELI_LILLY_AND_COMPANY-BR200908002546

PATIENT
  Age: 59 Year
  Sex: Female
  Weight: 80 kg

DRUGS (3)
  1. BYETTA [Suspect]
     Indication: WEIGHT CONTROL
     Dosage: 5 UG, UNKNOWN
     Route: 058
     Dates: start: 20090501
  2. BYETTA [Suspect]
     Dosage: 5 UG, UNKNOWN
     Route: 058
     Dates: end: 20090821
  3. RENITEC [Concomitant]
     Indication: HYPERTENSION
     Dosage: 20 MG, DAILY (1/D)
     Route: 065

REACTIONS (10)
  - BACK PAIN [None]
  - CHOLELITHIASIS [None]
  - DISCOMFORT [None]
  - DYSPNOEA [None]
  - INJECTION SITE ERYTHEMA [None]
  - INJECTION SITE HAEMATOMA [None]
  - INJECTION SITE PAIN [None]
  - INJECTION SITE PRURITUS [None]
  - OFF LABEL USE [None]
  - VOMITING [None]
